FAERS Safety Report 5238805-X (Version None)
Quarter: 2007Q1

REPORT INFORMATION
  Report Type: 
  Country: None (occurrence: None)
  Receive Date: 20070215
  Receipt Date: 20070208
  Transmission Date: 20070707
  Serious: Yes (Other)
  Sender: FDA-Public Use
  Company Number: US-PFIZER INC-2006131872

PATIENT
  Sex: Male
  Weight: 104.3 kg

DRUGS (3)
  1. NORVASC [Suspect]
     Indication: HYPERTENSION
     Route: 048
  2. LIPITOR [Suspect]
     Indication: HYPERCHOLESTEROLAEMIA
     Route: 048
     Dates: start: 19980101, end: 20060101
  3. LIPITOR [Suspect]
     Dosage: DAILY DOSE:40MG-FREQ:QD
     Route: 048

REACTIONS (1)
  - DIABETES MELLITUS [None]
